FAERS Safety Report 6111996-4 (Version None)
Quarter: 2009Q1

REPORT INFORMATION
  Report Type: 
  Country: None (occurrence: None)
  Receive Date: 20090311
  Receipt Date: 20090302
  Transmission Date: 20090719
  Serious: Yes (Other)
  Sender: FDA-Public Use
  Company Number: DE-GILEAD-2009-0020652

PATIENT
  Sex: Female

DRUGS (1)
  1. CIDOFOVIR [Suspect]
     Indication: ENCEPHALITIS CYTOMEGALOVIRUS

REACTIONS (2)
  - LEUKOPENIA [None]
  - SUBDURAL HAEMORRHAGE [None]
